FAERS Safety Report 8902639 (Version 2)
Quarter: 2012Q4

REPORT INFORMATION
  Report Type: 
  Country: US (occurrence: US)
  Receive Date: 20121112
  Receipt Date: 20121128
  Transmission Date: 20130627
  Serious: Yes (Other)
  Sender: FDA-Public Use
  Company Number: US-ROCHE-1152463

PATIENT

DRUGS (4)
  1. RITUXIMAB [Suspect]
     Indication: B-CELL LYMPHOMA
     Route: 042
  2. INTERLEUKIN-12 HUMAN RECOMBINANT [Suspect]
     Indication: B-CELL LYMPHOMA
     Route: 042
  3. INTERLEUKIN-12 HUMAN RECOMBINANT [Suspect]
     Route: 042
  4. INTERLEUKIN-12 HUMAN RECOMBINANT [Suspect]
     Route: 042

REACTIONS (13)
  - Nausea [Unknown]
  - Lymphopenia [Unknown]
  - Leukopenia [Unknown]
  - Vomiting [Unknown]
  - Diarrhoea [Unknown]
  - Thrombocytopenia [Unknown]
  - Aspartate aminotransferase increased [Unknown]
  - Influenza like illness [Unknown]
  - Fatigue [Unknown]
  - Hypoalbuminaemia [Unknown]
  - Rash erythematous [Unknown]
  - Pain in extremity [Unknown]
  - Hypophosphataemia [Unknown]
